FAERS Safety Report 7300926-5 (Version None)
Quarter: 2010Q4

REPORT INFORMATION
  Report Type: 
  Country: None (occurrence: None)
  Receive Date: 20101230
  Receipt Date: 20100816
  Transmission Date: 20110411
  Serious: Yes (Other)
  Sender: FDA-Public Use
  Company Number: 20100391

PATIENT
  Age: 33 Year
  Sex: Female
  Weight: 70 kg

DRUGS (1)
  1. VENOFER [Suspect]
     Indication: RENAL FAILURE CHRONIC
     Dosage: 100 MG INTRAVENOUS BOLUS
     Route: 040
     Dates: start: 20100812, end: 20100812

REACTIONS (1)
  - VOMITING [None]
